FAERS Safety Report 5318385-0 (Version None)
Quarter: 2007Q2

REPORT INFORMATION
  Report Type: 
  Country: None (occurrence: None)
  Receive Date: 20070507
  Receipt Date: 20070427
  Transmission Date: 20071010
  Serious: Yes (Hospitalization)
  Sender: FDA-Public Use
  Company Number: BE-ABBOTT-05P-013-0294913-00

PATIENT
  Sex: Female
  Weight: 59 kg

DRUGS (6)
  1. HUMIRA [Suspect]
     Indication: RHEUMATOID ARTHRITIS
     Route: 058
     Dates: start: 20040923, end: 20050113
  2. HUMIRA [Concomitant]
     Indication: RHEUMATOID ARTHRITIS
     Dates: start: 20040729
  3. METHOTREXATE [Concomitant]
     Indication: RHEUMATOID ARTHRITIS
     Dates: start: 20030208
  4. FOLIC ACID [Concomitant]
     Indication: PROPHYLAXIS
     Dates: start: 19931030
  5. BEVIPLEX [Concomitant]
     Indication: PROPHYLAXIS
     Dosage: EC 90
     Dates: start: 20020202
  6. CALCIUM CHLORIDE [Concomitant]
     Indication: PROPHYLAXIS
     Dates: start: 20000626

REACTIONS (1)
  - TOE DEFORMITY [None]
